FAERS Safety Report 4831321-6 (Version None)
Quarter: 2005Q4

REPORT INFORMATION
  Report Type: 
  Country: None (occurrence: None)
  Receive Date: 20051116
  Receipt Date: 20051116
  Transmission Date: 20060501
  Serious: Yes (Hospitalization)
  Sender: FDA-Public Use
  Company Number: None

PATIENT
  Age: 87 Year
  Sex: Male

DRUGS (2)
  1. AUGMENTIN XR [Suspect]
     Indication: DISEASE RECURRENCE
     Dosage: 1000/62.5  BID PO
     Route: 048
     Dates: start: 20050401, end: 20050405
  2. AUGMENTIN XR [Suspect]
     Indication: URINARY TRACT INFECTION
     Dosage: 1000/62.5  BID PO
     Route: 048
     Dates: start: 20050401, end: 20050405

REACTIONS (7)
  - ASTHENIA [None]
  - CONDITION AGGRAVATED [None]
  - DRUG HYPERSENSITIVITY [None]
  - PARKINSON'S DISEASE [None]
  - PRURITUS [None]
  - RASH [None]
  - STRESS [None]
